FAERS Safety Report 9263822 (Version 2)
Quarter: 2013Q2

REPORT INFORMATION
  Report Type: Spontaneous
  Country: US (occurrence: US)
  Receive Date: 20130430
  Receipt Date: 20130430
  Transmission Date: 20140414
  Serious: Yes (Hospitalization)
  Sender: FDA-Public Use
  Company Number: US-BAYER-2013-050149

PATIENT
  Age: 65 Year
  Sex: Male
  Weight: 113.38 kg

DRUGS (2)
  1. ALKA-SELTZER PLUS COLD + FLU FORMULA DAY/NIGHT LIQUID GEL COMBI DA [Suspect]
     Indication: NASOPHARYNGITIS
     Dosage: 2 DF, Q4HR
     Route: 048
     Dates: start: 200812, end: 20081224
  2. ALKA-SELTZER PLUS COLD + FLU FORMULA DAY/NIGHT LIQUID GEL COMBI NI [Suspect]
     Indication: NASOPHARYNGITIS
     Dosage: 2 DF, Q4HR
     Route: 048
     Dates: start: 200812, end: 20081224

REACTIONS (9)
  - Cerebrovascular accident [Recovered/Resolved]
  - Blood pressure increased [Recovered/Resolved]
  - Blood count abnormal [Recovered/Resolved]
  - Diabetes mellitus [Recovered/Resolved]
  - Dizziness [Recovered/Resolved]
  - Rhinorrhoea [Recovered/Resolved]
  - Foaming at mouth [Recovered/Resolved]
  - Convulsion [Recovered/Resolved]
  - Blood glucose increased [Recovered/Resolved]
